FAERS Safety Report 16588440 (Version 1)
Quarter: 2019Q3

REPORT INFORMATION
  Report Type: Report from Study
  Country: None (occurrence: AR)
  Receive Date: 20190718
  Receipt Date: 20190718
  Transmission Date: 20191004
  Serious: Yes (Other)
  Sender: FDA-Public Use
  Company Number: AR-ABBVIE-18K-007-2378546-00

PATIENT
  Age: 15 Year
  Sex: Female

DRUGS (1)
  1. HUMIRA [Suspect]
     Active Substance: ADALIMUMAB
     Indication: HIDRADENITIS
     Route: 058
     Dates: start: 20180222, end: 201805

REACTIONS (3)
  - Urinary tract infection [Not Recovered/Not Resolved]
  - Immunodeficiency [Unknown]
  - Kidney duplex [Unknown]

NARRATIVE: CASE EVENT DATE: 201805
